FAERS Safety Report 5570985-9 (Version None)
Quarter: 2007Q4

REPORT INFORMATION
  Report Type: 
  Country: None (occurrence: None)
  Receive Date: 20071221
  Receipt Date: 20071213
  Transmission Date: 20080405
  Serious: Yes (Other)
  Sender: FDA-Public Use
  Company Number: US-JNJFOC-20071204068

PATIENT
  Sex: Male

DRUGS (3)
  1. RISPERDAL [Suspect]
     Indication: SCHIZOPHRENIA
     Route: 048
  2. INVEGA [Suspect]
     Indication: SCHIZOPHRENIA
     Route: 048
  3. BENADRYL [Concomitant]
     Indication: HYPERSENSITIVITY

REACTIONS (4)
  - DYSTONIA [None]
  - HYPERSENSITIVITY [None]
  - RASH [None]
  - STOMACH DISCOMFORT [None]
